FAERS Safety Report 9449451 (Version 3)
Quarter: 2015Q1

REPORT INFORMATION
  Report Type: Report from Study
  Country: US (occurrence: US)
  Receive Date: 20130809
  Receipt Date: 20150328
  Transmission Date: 20150721
  Serious: Yes (Hospitalization)
  Sender: FDA-Public Use
  Company Number: US-BIOGENIDEC-2013BI057836

PATIENT
  Age: 54 Year
  Sex: Female

DRUGS (2)
  1. AVONEX [Suspect]
     Active Substance: INTERFERON BETA-1A
     Indication: MULTIPLE SCLEROSIS
     Route: 030
     Dates: start: 20130322
  2. AVONEX [Suspect]
     Active Substance: INTERFERON BETA-1A
     Indication: MULTIPLE SCLEROSIS
     Route: 030
     Dates: start: 200611

REACTIONS (13)
  - Back pain [Not Recovered/Not Resolved]
  - Hypoaesthesia [Recovered/Resolved]
  - Chronic obstructive pulmonary disease [Recovered/Resolved]
  - Skin infection [Recovered/Resolved]
  - Hypertension [Not Recovered/Not Resolved]
  - Nerve injury [Not Recovered/Not Resolved]
  - Mobility decreased [Not Recovered/Not Resolved]
  - Peripheral nerve operation [Recovered/Resolved]
  - Peripheral coldness [Recovered/Resolved]
  - Red blood cell count increased [Recovered/Resolved]
  - Influenza like illness [Not Recovered/Not Resolved]
  - Right ventricular failure [Recovered/Resolved]
  - Pulmonary hypertension [Recovered/Resolved]

NARRATIVE: CASE EVENT DATE: 20130614
